FAERS Safety Report 11039341 (Version 2)
Quarter: 2015Q2

REPORT INFORMATION
  Report Type: Spontaneous
  Country: BR (occurrence: BR)
  Receive Date: 20150416
  Receipt Date: 20150603
  Transmission Date: 20150821
  Serious: Yes (Other)
  Sender: FDA-Public Use
  Company Number: BR-PFIZER INC-2015126977

PATIENT
  Age: 63 Year
  Sex: Female
  Weight: 95 kg

DRUGS (4)
  1. SCITALAX [Concomitant]
     Indication: NEURALGIA
     Dosage: 2 TABLETS OF STRENGHT 10 MG (20 MG), DAILY
     Dates: start: 201503
  2. DETRUSITOL LA [Suspect]
     Active Substance: TOLTERODINE TARTRATE
     Indication: URINARY INCONTINENCE
     Dosage: 1 TABLET OF STRENGTH 4 MG, DAILY IN THE DINNER
     Route: 048
     Dates: start: 201503
  3. OLCADIL [Concomitant]
     Active Substance: CLOXAZOLAM
     Indication: NEURALGIA
     Dosage: 1 TABLET OF STRENGH 1 MG, AT NIGHT
     Dates: start: 201503
  4. SCITALAX [Concomitant]
     Indication: DEPRESSION

REACTIONS (2)
  - Drug ineffective [Unknown]
  - Dengue fever [Recovering/Resolving]

NARRATIVE: CASE EVENT DATE: 201503
